FAERS Safety Report 7534975-9 (Version None)
Quarter: 2011Q2

REPORT INFORMATION
  Report Type: 
  Country: None (occurrence: None)
  Receive Date: 20110609
  Receipt Date: 20081210
  Transmission Date: 20111010
  Serious: Yes (Hospitalization, Other)
  Sender: FDA-Public Use
  Company Number: PHHY2008DE31798

PATIENT
  Sex: Male
  Weight: 47 kg

DRUGS (2)
  1. EXJADE [Suspect]
     Dosage: 1500 MG DAILY (20 MG/KG DAILY)
     Route: 048
     Dates: start: 20080501
  2. EXJADE [Suspect]
     Indication: HAEMOSIDEROSIS
     Dosage: 1000 MG, QD
     Route: 048
     Dates: start: 20061106, end: 20080501

REACTIONS (5)
  - LIVER DISORDER [None]
  - THROMBOSIS [None]
  - SPLENOMEGALY [None]
  - HEPATOMEGALY [None]
  - SERUM FERRITIN INCREASED [None]
